FAERS Safety Report 13917584 (Version 2)
Quarter: 2017Q4

REPORT INFORMATION
  Report Type: Report from Study
  Country: BR (occurrence: BR)
  Receive Date: 20170829
  Receipt Date: 20171106
  Transmission Date: 20180320
  Serious: Yes (Other)
  Sender: FDA-Public Use
  Company Number: PHHY2017BR125680

PATIENT
  Sex: Female

DRUGS (2)
  1. FORTIFIT [Concomitant]
     Indication: PRODUCT USED FOR UNKNOWN INDICATION
     Route: 065
  2. EXELON PATCH [Suspect]
     Active Substance: RIVASTIGMINE
     Indication: DEMENTIA ALZHEIMER^S TYPE
     Route: 062

REACTIONS (16)
  - Cognitive disorder [Unknown]
  - Peripheral swelling [Unknown]
  - Anxiety [Unknown]
  - Drug ineffective [Unknown]
  - Feeling abnormal [Unknown]
  - Eating disorder [Unknown]
  - Urinary tract infection [Unknown]
  - Malnutrition [Unknown]
  - Euphoric mood [Unknown]
  - Agitation [Unknown]
  - Paralysis [Unknown]
  - Speech disorder [Unknown]
  - Obesity [Unknown]
  - Apathy [Unknown]
  - Tearfulness [Unknown]
  - Confusional state [Unknown]
